FAERS Safety Report 7564758-5 (Version None)
Quarter: 2011Q2

REPORT INFORMATION
  Report Type: 
  Country: None (occurrence: None)
  Receive Date: 20110622
  Receipt Date: 20101220
  Transmission Date: 20111010
  Serious: Yes (Other)
  Sender: FDA-Public Use
  Company Number: US-MYLANLABS-2010S1019916

PATIENT
  Age: 39 Year
  Sex: Male
  Weight: 78.02 kg

DRUGS (16)
  1. HALOPERIDOL [Concomitant]
  2. PREVACID [Concomitant]
  3. DEPAKOTE [Concomitant]
  4. TOPAMAX [Concomitant]
  5. POLYETHYLENE GLYCOL [Concomitant]
  6. BISACODYL [Concomitant]
  7. FEXOFENADINE [Concomitant]
  8. FOLIC ACID [Concomitant]
  9. LAMICTAL [Concomitant]
  10. DESMOPRESSIN [Concomitant]
  11. LACTULOSE [Concomitant]
  12. CLOZAPINE [Suspect]
     Indication: MENTAL DISORDER DUE TO A GENERAL MEDICAL CONDITION
     Route: 048
     Dates: start: 20101005, end: 20101123
  13. ASCORBIC ACID [Concomitant]
  14. NASACORT [Concomitant]
  15. LEVOCARNITINE [Concomitant]
  16. CLOZAPINE [Suspect]
     Indication: MANIA
     Route: 048
     Dates: start: 20101005, end: 20101123

REACTIONS (1)
  - GRANULOCYTOPENIA [None]
